FAERS Safety Report 10681847 (Version 2)
Quarter: 2015Q1

REPORT INFORMATION
  Report Type: Other
  Country: DE (occurrence: DE)
  Receive Date: 20141230
  Receipt Date: 20150106
  Transmission Date: 20150720
  Serious: Yes (Other)
  Sender: FDA-Public Use
  Company Number: DE-MYLANLABS-2014M1013740

PATIENT

DRUGS (5)
  1. SOTALOL. [Suspect]
     Active Substance: SOTALOL
     Indication: ARRHYTHMIA
     Dosage: 120 MG, QD
     Route: 048
     Dates: start: 20140115, end: 20140910
  2. VALSARTAN. [Suspect]
     Active Substance: VALSARTAN
     Indication: HYPERTENSION
     Dosage: 80 [MG/D ]
     Route: 048
     Dates: start: 20140115, end: 20140910
  3. ASPIRIN. [Concomitant]
     Active Substance: ASPIRIN
     Indication: CARDIOVASCULAR DISORDER
     Dosage: 100 [MG/D ]
     Route: 048
     Dates: start: 20140810, end: 20140905
  4. METHYLDOPA. [Concomitant]
     Active Substance: METHYLDOPA
     Indication: HYPERTENSION
     Route: 048
  5. FOLS?URE [Concomitant]
     Indication: PROPHYLAXIS OF NEURAL TUBE DEFECT
     Dosage: UNK
     Route: 048

REACTIONS (3)
  - Exposure during pregnancy [Unknown]
  - Preterm premature rupture of membranes [Recovered/Resolved]
  - Oligohydramnios [Recovered/Resolved]
